FAERS Safety Report 7522640-3 (Version None)
Quarter: 2011Q2

REPORT INFORMATION
  Report Type: 
  Country: None (occurrence: None)
  Receive Date: 20110603
  Receipt Date: 20110513
  Transmission Date: 20111010
  Serious: No
  Sender: FDA-Public Use
  Company Number: US-MYLANLABS-2011S1008729

PATIENT
  Age: 67 Year
  Sex: Male
  Weight: 104.78 kg

DRUGS (4)
  1. ROCURONIUM BROMIDE [Suspect]
     Indication: INDUCTION OF ANAESTHESIA
     Dosage: X 2 WITHIN ONE HOUR
     Route: 042
     Dates: start: 20110421, end: 20110421
  2. SUFENTANIL CITRATE [Concomitant]
  3. MIDAZOLAM HCL [Concomitant]
  4. ROCURONIUM BROMIDE [Suspect]
     Dosage: X 2 WITHIN ONE HOUR
     Route: 042
     Dates: start: 20110421, end: 20110421

REACTIONS (1)
  - DRUG EFFECT DECREASED [None]
